FAERS Safety Report 25205655 (Version 1)
Quarter: 2025Q2

REPORT INFORMATION
  Report Type: Spontaneous
  Country: US (occurrence: US)
  Receive Date: 20250417
  Receipt Date: 20250417
  Transmission Date: 20250717
  Serious: Yes (Other)
  Sender: SANOFI AVENTIS
  Company Number: US-SA-2025SA109659

PATIENT
  Age: 19 Year
  Sex: Male
  Weight: 81.27 kg

DRUGS (2)
  1. DUPIXENT [Suspect]
     Active Substance: DUPILUMAB
     Indication: Eosinophilic oesophagitis
     Dosage: 300 MG, QW
     Route: 058
  2. OLUMIANT [Concomitant]
     Active Substance: BARICITINIB
     Dates: end: 202503

REACTIONS (4)
  - Septic shock [Unknown]
  - Dehydration [Unknown]
  - Gastrointestinal viral infection [Unknown]
  - Nausea [Unknown]

NARRATIVE: CASE EVENT DATE: 20250301
